FAERS Safety Report 5690017-1 (Version None)
Quarter: 2008Q1

REPORT INFORMATION
  Report Type: 
  Country: None (occurrence: None)
  Receive Date: 20080331
  Receipt Date: 20080331
  Transmission Date: 20080703
  Serious: Yes (Other)
  Sender: FDA-Public Use
  Company Number: None

PATIENT
  Weight: 13.1543 kg

DRUGS (1)
  1. CLARITIN [Suspect]
     Indication: HYPERSENSITIVITY
     Dosage: 1 TSP. 1 TIME PER DAY PO
     Route: 048

REACTIONS (9)
  - ABNORMAL BEHAVIOUR [None]
  - ANGER [None]
  - FAECAL INCONTINENCE [None]
  - MENTAL DISORDER [None]
  - OPPOSITIONAL DEFIANT DISORDER [None]
  - PSYCHOMOTOR HYPERACTIVITY [None]
  - SCREAMING [None]
  - SLEEP DISORDER [None]
  - URINARY INCONTINENCE [None]
